FAERS Safety Report 8540306-8 (Version None)
Quarter: 2012Q3

REPORT INFORMATION
  Report Type: 
  Country: None (occurrence: None)
  Receive Date: 20120713
  Receipt Date: 20110704
  Transmission Date: 20120928
  Serious: Yes (Hospitalization)
  Sender: FDA-Public Use
  Company Number: 2011AP001344

PATIENT
  Age: 80 Year
  Sex: Female

DRUGS (3)
  1. SIMVASTATIN [Suspect]
     Indication: TYPE IIA HYPERLIPIDAEMIA
     Dosage: 40 MG; QD
  2. DILTIAZEM [Suspect]
     Indication: HYPERTENSION
     Dosage: 60 MG; BID
  3. NICERGOLINE (NICERGOLINE) [Concomitant]

REACTIONS (3)
  - DRUG INTERACTION [None]
  - MYOPATHY [None]
  - RENAL IMPAIRMENT [None]
